FAERS Safety Report 5150531-4 (Version None)
Quarter: 2006Q4

REPORT INFORMATION
  Report Type: 
  Country: None (occurrence: None)
  Receive Date: 20061108
  Receipt Date: 20061026
  Transmission Date: 20070319
  Serious: Yes (Hospitalization)
  Sender: FDA-Public Use
  Company Number: 2006017294

PATIENT
  Age: 67 Year
  Sex: Female
  Weight: 59 kg

DRUGS (13)
  1. SUTENT [Suspect]
     Indication: RENAL CELL CARCINOMA STAGE UNSPECIFIED
     Dosage: 37.5 MG (37.5 MG, 1 IN 1 D), ORAL
     Route: 048
     Dates: start: 20051125
  2. DOLCONTIN (MORPHINE SULFATE) [Concomitant]
  3. MORPHINE [Concomitant]
  4. BETAPRED [Concomitant]
  5. TRYPTIZOL (AMITRIPTYLINE HYDROCHLORIDE) [Concomitant]
  6. ASPIRIN [Concomitant]
  7. SIMVASTATIN [Concomitant]
  8. ATACAND [Concomitant]
  9. METFORMIN HCL [Concomitant]
  10. METOPROLOL TARTRATE [Concomitant]
  11. PRIMPERAN TAB [Concomitant]
  12. ZOPICLONE (ZOPICLONE) [Concomitant]
  13. XYLOCAINE [Concomitant]

REACTIONS (2)
  - MUSCULAR WEAKNESS [None]
  - VERTIGO [None]
